FAERS Safety Report 20092315 (Version 3)
Quarter: 2022Q1

REPORT INFORMATION
  Report Type: Report from Study
  Country: US (occurrence: US)
  Receive Date: 20211119
  Receipt Date: 20220217
  Transmission Date: 20220423
  Serious: Yes (Hospitalization)
  Sender: FDA-Public Use
  Company Number: US-JCAR017-FOL-001-1071003-20210805-0001SG

PATIENT
  Age: 43 Year
  Sex: Male
  Weight: 96 kg

DRUGS (29)
  1. LISOCABTAGENE MARALEUCEL [Suspect]
     Active Substance: LISOCABTAGENE MARALEUCEL
     Indication: Follicular lymphoma
     Dosage: 100 X 10^6 CAR+ T CELLS X ONCE
     Route: 042
     Dates: start: 20210720, end: 20210720
  2. CYCLOPHOSPHAMIDE [Suspect]
     Active Substance: CYCLOPHOSPHAMIDE
     Indication: Follicular lymphoma
     Dosage: 658 MG X ONCE
     Route: 042
     Dates: start: 20210715, end: 20210715
  3. CYCLOPHOSPHAMIDE [Suspect]
     Active Substance: CYCLOPHOSPHAMIDE
     Dosage: 658 MG X ONCE
     Route: 042
     Dates: start: 20210716, end: 20210716
  4. CYCLOPHOSPHAMIDE [Suspect]
     Active Substance: CYCLOPHOSPHAMIDE
     Dosage: 658 MG X ONCE
     Route: 042
     Dates: start: 20210717, end: 20210717
  5. FLUDARABINE [Suspect]
     Active Substance: FLUDARABINE PHOSPHATE
     Indication: Follicular lymphoma
     Dosage: 65 MG X ONCE
     Route: 042
     Dates: start: 20210715, end: 20210715
  6. FLUDARABINE [Suspect]
     Active Substance: FLUDARABINE PHOSPHATE
     Dosage: 65 MG X ONCE
     Route: 042
     Dates: start: 20210716, end: 20210716
  7. FLUDARABINE [Suspect]
     Active Substance: FLUDARABINE PHOSPHATE
     Dosage: 65 MG X ONCE
     Route: 042
     Dates: start: 20210717, end: 20210717
  8. POLYETHYLENE GLYCOL [Concomitant]
     Active Substance: POLYETHYLENE GLYCOL
     Indication: Prophylaxis
     Dosage: 17 G X PRN
     Route: 048
  9. DOCUSATE SODIUM\SENNOSIDES [Concomitant]
     Active Substance: DOCUSATE SODIUM\SENNOSIDES
     Indication: Prophylaxis
     Dosage: 1 TABLET X 2 X 1 DAYS
     Route: 048
  10. ACETAMINOPHEN [Concomitant]
     Active Substance: ACETAMINOPHEN
     Indication: Prophylaxis
     Dosage: 650 MG X ONCE
     Route: 048
     Dates: start: 20210716, end: 20210716
  11. ACETAMINOPHEN [Concomitant]
     Active Substance: ACETAMINOPHEN
     Dosage: 650 MG X ONCE
     Route: 048
     Dates: start: 20210720, end: 20210720
  12. ACYCLOVIR [Concomitant]
     Active Substance: ACYCLOVIR
     Indication: Prophylaxis
     Dosage: 800 MG X 2 X 1 DAYS
     Route: 048
     Dates: start: 20210714, end: 20210729
  13. ALPRAZOLAM [Concomitant]
     Active Substance: ALPRAZOLAM
     Indication: Prophylaxis
     Dosage: 0.5 MG X 1 X 24 HOURS
     Route: 048
     Dates: start: 20210807
  14. ALPRAZOLAM [Concomitant]
     Active Substance: ALPRAZOLAM
     Indication: Product used for unknown indication
     Dosage: 0.5 MG X PRN
     Route: 048
     Dates: start: 20210807
  15. ALPRAZOLAM [Concomitant]
     Active Substance: ALPRAZOLAM
     Indication: Adverse event
     Dosage: 0.5 MG
     Route: 048
     Dates: start: 20210807
  16. DIPHENHYDRAMINE [Concomitant]
     Active Substance: DIPHENHYDRAMINE
     Indication: Prophylaxis
     Dosage: 25 MG X ONCE
     Route: 042
     Dates: start: 20210720, end: 20210720
  17. GRANISETRON [Concomitant]
     Active Substance: GRANISETRON
     Indication: Prophylaxis
     Dosage: 1 MG X 1 X 1 DAYS
     Route: 042
     Dates: start: 20210715, end: 20210717
  18. GRANISETRON HYDROCHLORIDE [Concomitant]
     Active Substance: GRANISETRON HYDROCHLORIDE
     Indication: Prophylaxis
     Dosage: 1 MG X PRN
     Route: 048
     Dates: start: 20210716, end: 20210727
  19. LORAZEPAM [Concomitant]
     Active Substance: LORAZEPAM
     Indication: Anxiety
     Dosage: 1 MG X 1 X 1 DAYS
     Route: 042
     Dates: start: 20210716, end: 20210717
  20. LORAZEPAM [Concomitant]
     Active Substance: LORAZEPAM
     Dosage: 1 MG X PRN
     Route: 048
     Dates: start: 20210716, end: 20210901
  21. NS BOLUS [Concomitant]
     Indication: Prophylaxis
     Dosage: 1,000 ML
     Route: 042
     Dates: start: 20210715, end: 20210715
  22. NS INFUSION [Concomitant]
     Indication: Prophylaxis
     Dosage: 250 ML X ONCE
     Route: 042
     Dates: start: 20210715, end: 20210715
  23. NS INJECTION FLUSH [Concomitant]
     Indication: Prophylaxis
     Dosage: 10 ML X PRN
     Route: 042
     Dates: start: 20210716, end: 20210717
  24. ONDANSETRON [Concomitant]
     Active Substance: ONDANSETRON
     Indication: Prophylaxis
     Dosage: 8 MG X PRN
     Route: 048
     Dates: start: 20200814, end: 20210714
  25. OXYCODONE [Concomitant]
     Active Substance: OXYCODONE
     Indication: Migraine
     Dosage: 5 MG X ONCE
     Route: 048
     Dates: start: 20210720, end: 20210720
  26. OXYCODONE [Concomitant]
     Active Substance: OXYCODONE
     Dosage: 5 MG X ONCE
     Route: 048
     Dates: start: 20210721, end: 20210721
  27. OXYCODONE [Concomitant]
     Active Substance: OXYCODONE
     Dosage: 5 MG X PRN
     Route: 048
     Dates: start: 20210721, end: 20210901
  28. SULFAMETHOXAZOLE\TRIMETHOPRIM [Concomitant]
     Active Substance: SULFAMETHOXAZOLE\TRIMETHOPRIM
     Indication: Prophylaxis
     Dosage: 800-160 MG X 2 X 1 DAYS
     Route: 048
     Dates: start: 20210715
  29. ZOLPIDEM [Concomitant]
     Active Substance: ZOLPIDEM TARTRATE
     Indication: Insomnia
     Dosage: 5 MG X 1 X 1 DAYS
     Route: 048
     Dates: start: 20210517, end: 20210628

REACTIONS (1)
  - Neurotoxicity [Recovered/Resolved]

NARRATIVE: CASE EVENT DATE: 20210725
